FAERS Safety Report 10733713 (Version 5)
Quarter: 2015Q1

REPORT INFORMATION
  Report Type: Spontaneous
  Country: US (occurrence: US)
  Receive Date: 20150123
  Receipt Date: 20150313
  Transmission Date: 20150721
  Serious: Yes (Hospitalization)
  Sender: FDA-Public Use
  Company Number: US-UNITED THERAPEUTICS-UNT-2014-012639

PATIENT
  Age: 73 Year
  Sex: Female
  Weight: 51.7 kg

DRUGS (5)
  1. WARFARIN [Concomitant]
     Active Substance: WARFARIN
     Indication: PRODUCT USED FOR UNKNOWN INDICATION
  2. REVATIO [Concomitant]
     Active Substance: SILDENAFIL CITRATE
     Indication: PRODUCT USED FOR UNKNOWN INDICATION
  3. REMODULIN [Suspect]
     Active Substance: TREPROSTINIL
     Dosage: 0.018 ML/HR
     Route: 058
  4. REMODULIN [Suspect]
     Active Substance: TREPROSTINIL
     Indication: PULMONARY ARTERIAL HYPERTENSION
     Dosage: 0.065 ?G/KG, CONTINUING
     Route: 058
     Dates: start: 20080806
  5. REMODULIN [Suspect]
     Active Substance: TREPROSTINIL
     Dosage: 0.065 ?G/KG, CONTINUING
     Route: 058
     Dates: start: 20080806

REACTIONS (5)
  - Malaise [Unknown]
  - Fluid retention [Not Recovered/Not Resolved]
  - Chronic kidney disease [Unknown]
  - Diarrhoea [Unknown]
  - Chest pain [Recovered/Resolved]

NARRATIVE: CASE EVENT DATE: 20141211
